FAERS Safety Report 18713433 (Version 1)
Quarter: 2021Q1

REPORT INFORMATION
  Report Type: Spontaneous
  Country: US (occurrence: US)
  Receive Date: 20210107
  Receipt Date: 20210107
  Transmission Date: 20210419
  Serious: Yes (Hospitalization)
  Sender: FDA-Public Use
  Company Number: US-ELI_LILLY_AND_COMPANY-US202012013667

PATIENT
  Age: 73 Year
  Sex: Male
  Weight: 82.1 kg

DRUGS (1)
  1. BAMLANIVIMAB 700MG [Suspect]
     Active Substance: BAMLANIVIMAB
     Indication: COVID-19
     Dosage: 700 MG, SINGLE
     Route: 065
     Dates: start: 20201130, end: 20201130

REACTIONS (4)
  - Confusional state [Unknown]
  - Encephalopathy [Unknown]
  - Delirium [Unknown]
  - Mental status changes [Unknown]

NARRATIVE: CASE EVENT DATE: 20201217
